FAERS Safety Report 10314561 (Version 3)
Quarter: 2014Q3

REPORT INFORMATION
  Report Type: Spontaneous
  Country: US (occurrence: None)
  Receive Date: 20140714
  Receipt Date: 20140829
  Transmission Date: 20150326
  Serious: Yes (Hospitalization, Other)
  Sender: FDA-Public Use
  Company Number: ADR-2014-01175

PATIENT
  Age: 58 Year
  Sex: Male

DRUGS (11)
  1. ANTIBIOTICS (UNSPECIFIED) [Suspect]
     Active Substance: UNSPECIFIED INGREDIENT
  2. ADDERAX [Suspect]
     Active Substance: HYDROXYZINE HYDROCHLORIDE
  3. ORAL BACLOFEN [Suspect]
     Active Substance: BACLOFEN
  4. COPAXONE [Suspect]
     Active Substance: GLATIRAMER ACETATE
  5. LASIK [Suspect]
     Active Substance: FUROSEMIDE\POTASSIUM CHLORIDE
  6. DOXYCYCLINE. [Suspect]
     Active Substance: DOXYCYCLINE
  7. COMPOUNDED BACLOFEN INTRATHECAL [Suspect]
     Active Substance: BACLOFEN
     Indication: MUSCLE SPASTICITY
     Dates: start: 20140618
  8. CEFPODOXIME [Suspect]
     Active Substance: CEFPODOXIME
  9. IV ANTIBIOTICS (UNSPECIFIED) [Suspect]
     Active Substance: UNSPECIFIED INGREDIENT
  10. LEVAQUIN [Suspect]
     Active Substance: LEVOFLOXACIN
  11. LIORESAL [Suspect]
     Active Substance: BACLOFEN
     Dates: end: 20140618

REACTIONS (23)
  - Condition aggravated [None]
  - Quality of life decreased [None]
  - Muscle spasms [None]
  - No therapeutic response [None]
  - Drug effect decreased [None]
  - Insomnia [None]
  - Activities of daily living impaired [None]
  - Skin discolouration [None]
  - Muscle rigidity [None]
  - Hypertension [None]
  - Pruritus [None]
  - Respiratory disorder [None]
  - Dysstasia [None]
  - Pain in extremity [None]
  - Urinary tract infection [None]
  - Stenotrophomonas test positive [None]
  - Bronchospasm [None]
  - Product substitution issue [None]
  - Escherichia test positive [None]
  - Drug withdrawal syndrome [None]
  - Abnormal behaviour [None]
  - Muscle atrophy [None]
  - Muscle spasticity [None]

NARRATIVE: CASE EVENT DATE: 20140620
